FAERS Safety Report 25301544 (Version 1)
Quarter: 2025Q2

REPORT INFORMATION
  Report Type: Spontaneous
  Country: US (occurrence: None)
  Receive Date: 20250511
  Receipt Date: 20250511
  Transmission Date: 20250716
  Serious: Yes (Other)
  Sender: FDA-CTU
  Company Number: None

PATIENT
  Age: 86 Year
  Sex: Female
  Weight: 67.5 kg

DRUGS (15)
  1. FLUOROURACIL [Suspect]
     Active Substance: FLUOROURACIL
     Indication: Precancerous skin lesion
     Dates: start: 20180701, end: 20180901
  2. PREMARIN [Concomitant]
     Active Substance: ESTROGENS, CONJUGATED
  3. SYNTHROID [Concomitant]
     Active Substance: LEVOTHYROXINE SODIUM
  4. LIOTHYRONINE [Concomitant]
     Active Substance: LIOTHYRONINE
  5. TRIAMTERINE [Concomitant]
  6. XANAX [Concomitant]
     Active Substance: ALPRAZOLAM
  7. CLINDINIUM [Concomitant]
  8. DESONIDE [Concomitant]
     Active Substance: DESONIDE
  9. CYANOCOBALAMIN [Concomitant]
     Active Substance: CYANOCOBALAMIN
  10. VITAMIN D NOS [Concomitant]
     Active Substance: CHOLECALCIFEROL\ERGOCALCIFEROL
  11. FOLIC ACID [Concomitant]
     Active Substance: FOLIC ACID
  12. OMEGA3 [Concomitant]
  13. PROBIOTICS NOS [Concomitant]
     Active Substance: PROBIOTICS NOS
  14. METAMUCIL [Concomitant]
     Active Substance: PLANTAGO SEED
  15. DUCOSATE SODIUM [Concomitant]

REACTIONS (10)
  - Alopecia [None]
  - COVID-19 [None]
  - Pain [None]
  - Burning sensation [None]
  - Dry skin [None]
  - Rash [None]
  - Drug ineffective [None]
  - Insomnia [None]
  - Contusion [None]
  - Social problem [None]

NARRATIVE: CASE EVENT DATE: 20241001
